FAERS Safety Report 25994717 (Version 1)
Quarter: 2025Q4

REPORT INFORMATION
  Report Type: Spontaneous
  Country: US (occurrence: US)
  Receive Date: 20251104
  Receipt Date: 20251104
  Transmission Date: 20260118
  Serious: No
  Sender: Onesource Specialty Pharma
  Company Number: US-STRIDES ARCOLAB LIMITED-2025-ST-000670

PATIENT
  Age: 25 Year
  Sex: Female

DRUGS (4)
  1. BUPIVACAINE [Suspect]
     Active Substance: BUPIVACAINE
     Indication: Anaesthesia
     Dosage: 1.6 MILLILITER, 1.6 MILLILITER, INJECTED INTO THE SUBARACHNOID SPACE AT APPROXIMATELY THE L2/3 INTER
  2. BUPIVACAINE [Suspect]
     Active Substance: BUPIVACAINE
     Indication: Anaesthesia
     Dosage: 25 MILLIMETRE, OVER 21 MINUTES
     Route: 008
  3. FENTANYL [Suspect]
     Active Substance: FENTANYL
     Indication: Anaesthesia
     Dosage: 15 MICROGRAM, INJECTED INTO THE SUBARACHNOID SPACE AT APPROXIMATELY THE L2/3 INTERSPACE
  4. MORPHINE [Suspect]
     Active Substance: MORPHINE
     Indication: Anaesthesia
     Dosage: 200 MICROGRAM, INJECTED INTO THE SUBARACHNOID SPACE AT APPROXIMATELY THE L2/3 INTERSPACE

REACTIONS (2)
  - Off label use [Unknown]
  - Maternal exposure during delivery [Unknown]
